FAERS Safety Report 18210437 (Version 2)
Quarter: 2020Q4

REPORT INFORMATION
  Report Type: Spontaneous
  Country: US (occurrence: US)
  Receive Date: 20200829
  Receipt Date: 20201006
  Transmission Date: 20210113
  Serious: No
  Sender: FDA-Public Use
  Company Number: US-LEXICON PHARMACEUTICALS, INC-20-1606-00692

PATIENT
  Age: 64 Year
  Sex: Female

DRUGS (3)
  1. XERMELO [Suspect]
     Active Substance: TELOTRISTAT ETHYL
     Indication: NEUROENDOCRINE TUMOUR
     Dates: start: 20200413
  2. SANDOSTATIN [Concomitant]
     Active Substance: OCTREOTIDE ACETATE
  3. MORPHINE [Concomitant]
     Active Substance: MORPHINE
     Indication: DIARRHOEA

REACTIONS (3)
  - Dehydration [Unknown]
  - Abdominal pain [Unknown]
  - Defaecation urgency [Unknown]
